FAERS Safety Report 5096215-2 (Version None)
Quarter: 2006Q3

REPORT INFORMATION
  Report Type: 
  Country: None (occurrence: None)
  Receive Date: 20060905
  Receipt Date: 20060809
  Transmission Date: 20061208
  Serious: Yes (Life-Threatening, Hospitalization)
  Sender: FDA-Public Use
  Company Number: PHHO2006JP13203

PATIENT
  Age: 31 Year
  Sex: Female
  Weight: 60 kg

DRUGS (10)
  1. SIMULECT [Suspect]
     Indication: RENAL TRANSPLANT
     Dosage: ONCE/SINGLE
     Route: 042
     Dates: start: 20050422, end: 20050422
  2. SIMULECT [Suspect]
     Dosage: ONCE/SINGLE
     Route: 042
     Dates: start: 20050426, end: 20050426
  3. CELLCEPT [Suspect]
     Indication: RENAL TRANSPLANT
     Dosage: 1000 MG/ DAILY
     Route: 048
     Dates: start: 20050421, end: 20050422
  4. CELLCEPT [Suspect]
     Dosage: 2000 MG / DAILY
     Route: 048
     Dates: start: 20050423, end: 20050427
  5. CELLCEPT [Suspect]
     Dosage: 1000 MG/DAILY
     Route: 048
     Dates: start: 20050428
  6. PREDONINE [Concomitant]
     Indication: RENAL TRANSPLANT
     Dosage: 60 MG /DAILY
     Route: 048
     Dates: start: 20050421
  7. PREDONINE [Concomitant]
     Dosage: 20 MG / DAILY
     Route: 048
  8. PREDONINE [Concomitant]
     Dosage: 10 MG/DAILY
     Route: 048
  9. SANDIMMUNE [Concomitant]
     Indication: RENAL TRANSPLANT
     Route: 048
     Dates: start: 20050418
  10. CYCLOSPORINE [Suspect]
     Indication: RENAL TRANSPLANT

REACTIONS (12)
  - ANAEMIA [None]
  - COMPLEMENT FIXATION ABNORMAL [None]
  - CYTOMEGALOVIRUS ANTIGEN POSITIVE [None]
  - CYTOMEGALOVIRUS INFECTION [None]
  - DIARRHOEA [None]
  - DIZZINESS [None]
  - DUODENAL ULCER HAEMORRHAGE [None]
  - HAEMOGLOBIN DECREASED [None]
  - MALAISE [None]
  - PYREXIA [None]
  - SHOCK HAEMORRHAGIC [None]
  - VOMITING [None]
